FAERS Safety Report 10089843 (Version 2)
Quarter: 2014Q2

REPORT INFORMATION
  Report Type: Report from Study
  Country: US (occurrence: US)
  Receive Date: 20140421
  Receipt Date: 20140421
  Transmission Date: 20141212
  Serious: No
  Sender: FDA-Public Use
  Company Number: US-ABBVIE-14P-163-1209343-00

PATIENT
  Sex: 0

DRUGS (1)
  1. LUPRON (PEDIATRIC) [Suspect]
     Indication: UNEVALUABLE EVENT

REACTIONS (1)
  - Pain [Unknown]
